FAERS Safety Report 18350186 (Version 4)
Quarter: 2021Q1

REPORT INFORMATION
  Report Type: Report from Study
  Country: JP (occurrence: JP)
  Receive Date: 20201006
  Receipt Date: 20210107
  Transmission Date: 20210419
  Serious: Yes (Hospitalization, Other)
  Sender: FDA-Public Use
  Company Number: JP-ASTELLAS-2018JP010115

PATIENT
  Age: 81 Year
  Sex: Male
  Weight: 50 kg

DRUGS (11)
  1. APALUTAMIDE [Suspect]
     Active Substance: APALUTAMIDE
     Dosage: 180 MG/DAY, UNKNOWN FREQ.
     Route: 065
     Dates: start: 20190806
  2. ESTRACYT [ESTRAMUSTINE PHOSPHATE SODIUM] [Concomitant]
     Indication: HORMONE-REFRACTORY PROSTATE CANCER
     Dosage: 4 DF/DAY, UNKNOWN FREQ.
     Route: 065
     Dates: start: 20191107
  3. ENZALUTAMIDE [Suspect]
     Active Substance: ENZALUTAMIDE
     Dosage: 4 DF/DAY, UNKNOWN FREQ.
     Route: 065
     Dates: start: 20170417, end: 20181016
  4. APALUTAMIDE [Suspect]
     Active Substance: APALUTAMIDE
     Indication: HORMONE-REFRACTORY PROSTATE CANCER
     Dosage: 240 MG/DAY, UNKNOWN FREQ.
     Route: 065
     Dates: start: 20190629, end: 20190713
  5. APALUTAMIDE [Suspect]
     Active Substance: APALUTAMIDE
     Dosage: 240 MG/DAY, UNKNOWN FREQ.
     Route: 065
     Dates: start: 20190823, end: 20191029
  6. ABIRATERONE ACETATE. [Concomitant]
     Active Substance: ABIRATERONE ACETATE
     Indication: HORMONE-REFRACTORY PROSTATE CANCER
     Dosage: 4 DF/DAY, UNKNOWN FREQ.
     Route: 048
     Dates: start: 20181018, end: 20190628
  7. PREDNISOLONE. [Concomitant]
     Active Substance: PREDNISOLONE
     Indication: PRODUCT USED FOR UNKNOWN INDICATION
     Dosage: 10 MG/DAY, UNKNOWN FREQ.
     Route: 065
     Dates: start: 20181018, end: 20190628
  8. PREDNISOLONE. [Concomitant]
     Active Substance: PREDNISOLONE
     Dosage: 5 MG/DAY, UNKNOWN FREQ.
     Route: 065
     Dates: start: 20190629, end: 20190920
  9. APALUTAMIDE [Suspect]
     Active Substance: APALUTAMIDE
     Dosage: 120 MG/DAY, UNKNOWN FREQ.
     Route: 065
     Dates: start: 20190726
  10. ENZALUTAMIDE [Suspect]
     Active Substance: ENZALUTAMIDE
     Indication: HORMONE-REFRACTORY PROSTATE CANCER
     Dosage: 4 DF/DAY, UNKNOWN FREQ.
     Route: 065
     Dates: start: 20170302, end: 20170316
  11. ODYNE [Concomitant]
     Active Substance: FLUTAMIDE
     Indication: HORMONE-REFRACTORY PROSTATE CANCER
     Dosage: UNK UNK, UNKNOWN FREQ.
     Route: 065
     Dates: start: 201607, end: 201703

REACTIONS (9)
  - Decreased appetite [Not Recovered/Not Resolved]
  - Urinary retention [Recovered/Resolved]
  - Eczema [Recovered/Resolved]
  - Breast pain [Not Recovered/Not Resolved]
  - Drug-induced liver injury [Recovered/Resolved]
  - Malaise [Not Recovered/Not Resolved]
  - Thoracic vertebral fracture [Recovering/Resolving]
  - Eczema [Recovered/Resolved]
  - Haematuria [Recovered/Resolved]

NARRATIVE: CASE EVENT DATE: 20170316
